FAERS Safety Report 7909309-8 (Version None)
Quarter: 2011Q4

REPORT INFORMATION
  Report Type: 
  Country: None (occurrence: None)
  Receive Date: 20111111
  Receipt Date: 20111107
  Transmission Date: 20120403
  Serious: Yes (Death, Other)
  Sender: FDA-Public Use
  Company Number: AU-PFIZER INC-2011244229

PATIENT
  Age: 75 Year
  Sex: Male
  Weight: 60 kg

DRUGS (25)
  1. PROMETHAZINE [Concomitant]
     Dosage: 12.5 MG, 2X/DAY
     Route: 048
  2. COLCHICINE [Concomitant]
     Dosage: 0.25 MG, 2X/DAY
     Dates: start: 20111003, end: 20111009
  3. TYGACIL [Suspect]
     Indication: MYCOBACTERIUM CHELONAE INFECTION
     Dosage: 100 MG, SINGLE
     Route: 042
     Dates: start: 20111003, end: 20111003
  4. BISOPROLOL [Concomitant]
     Indication: CARDIAC FAILURE CONGESTIVE
     Dosage: 5 MG, 1X/DAY, MANE
     Route: 048
  5. COLCHICINE [Concomitant]
     Indication: GOUT
     Dosage: 0.5 MG, 2X/DAY
     Route: 048
     Dates: start: 20110930
  6. PREDNISOLONE [Concomitant]
     Dosage: 10 MG, UNK
     Route: 048
     Dates: start: 20110911, end: 20110914
  7. ACETAMINOPHEN [Concomitant]
  8. MOMETASONE [Concomitant]
     Dosage: UNK
     Route: 061
  9. THIAMINE [Concomitant]
     Dosage: 100 MG, 1X/DAY
     Route: 048
     Dates: start: 20110914
  10. IVABRADINE [Concomitant]
     Dosage: 5 MG, 2X/DAY
     Route: 048
     Dates: start: 20110902, end: 20111010
  11. PREDNISOLONE [Concomitant]
     Dosage: 20 MG, UNK
     Route: 048
     Dates: start: 20110906, end: 20110910
  12. DIGOXIN [Concomitant]
     Indication: CARDIAC FAILURE CONGESTIVE
     Dosage: 62.5 UG, UNK
     Route: 048
  13. SALBUTAMOL [Concomitant]
     Dosage: UNK
     Route: 055
  14. ACETYLSALICYLIC ACID [Concomitant]
     Dosage: 150 MG, 1X/DAY
     Route: 048
  15. TOBRAMYCIN [Suspect]
     Indication: MYCOBACTERIUM CHELONAE INFECTION
     Dosage: 180 MG, 3X/DAY, EVERY 8 HOURS
     Route: 042
     Dates: start: 20111003, end: 20111010
  16. FLUTICASONE PROPIONATE/SALMETEROL [Concomitant]
     Dosage: 250/25 TWO PUFFS 2X PER DAY
     Route: 055
  17. CEFTRIAXONE [Concomitant]
     Dosage: 1 G, 1X/DAY
     Route: 042
     Dates: start: 20110920, end: 20111002
  18. TYGACIL [Suspect]
     Dosage: 50 MG, 2X/DAY
     Route: 042
     Dates: start: 20111004, end: 20111010
  19. CLARITHROMYCIN [Suspect]
     Indication: MYCOBACTERIUM CHELONAE INFECTION
     Dosage: 500 MG, 2X/DAY
     Route: 048
     Dates: start: 20111003
  20. AMIODARONE [Concomitant]
     Dosage: 200 MG, 1X/DAY IN THE MORNING
     Dates: start: 20110927, end: 20111014
  21. FUROSEMIDE [Concomitant]
     Indication: CARDIAC FAILURE CONGESTIVE
     Dosage: 2 MANE
     Route: 048
  22. OXYCONTIN [Concomitant]
     Dosage: 10 MG, 2X/DAY
     Route: 048
     Dates: start: 20110915
  23. SPIRONOLACTONE [Concomitant]
     Indication: CARDIAC FAILURE CONGESTIVE
     Dosage: 1 MANE
     Route: 048
  24. TEMAZEPAM [Concomitant]
     Dosage: 10 MG, 1X/DAY, NOCTE
     Route: 048
  25. PREDNISOLONE [Concomitant]
     Dosage: 25 MG, UNK
     Route: 048
     Dates: start: 20110903, end: 20110905

REACTIONS (4)
  - CARDIAC FAILURE CONGESTIVE [None]
  - THROMBOCYTOPENIA [None]
  - MULTI-ORGAN FAILURE [None]
  - BLOOD CREATININE INCREASED [None]
